FAERS Safety Report 21309080 (Version 1)
Quarter: 2022Q3

REPORT INFORMATION
  Report Type: Report from Study
  Country: KR (occurrence: KR)
  Receive Date: 20220908
  Receipt Date: 20220908
  Transmission Date: 20221027
  Serious: Yes (Hospitalization)
  Sender: FDA-Public Use
  Company Number: KR-ACERUSPHRM-2022-KR-000001

PATIENT
  Age: 71 Year
  Sex: Male
  Weight: 80 kg

DRUGS (10)
  1. NATESTO [Suspect]
     Active Substance: TESTOSTERONE
     Indication: Hypogonadism
     Dates: start: 20210902
  2. DONGA OPALMON TAB [Concomitant]
     Route: 048
     Dates: start: 20210929
  3. UDENAFIL [Concomitant]
     Active Substance: UDENAFIL
     Indication: Hypogonadism
     Route: 048
     Dates: start: 20200917
  4. HARNAL [Concomitant]
     Active Substance: TAMSULOSIN HYDROCHLORIDE
     Route: 048
     Dates: start: 20210121
  5. ALDOSTEN [Concomitant]
     Route: 048
     Dates: start: 20180618
  6. GASTER [Concomitant]
     Active Substance: FAMOTIDINE
     Route: 048
     Dates: start: 20200106
  7. HERBALS [Concomitant]
     Active Substance: HERBALS
     Route: 048
     Dates: start: 20200106
  8. LEBROCOL [Concomitant]
     Route: 048
     Dates: start: 20200106
  9. SPIRIVA [Concomitant]
     Active Substance: TIOTROPIUM BROMIDE MONOHYDRATE
     Route: 048
     Dates: start: 20111201
  10. MULEX TAB [Concomitant]
     Route: 048
     Dates: start: 20210929

REACTIONS (1)
  - Lumbar spinal stenosis [Recovered/Resolved]

NARRATIVE: CASE EVENT DATE: 20211119
